FAERS Safety Report 24153414 (Version 3)
Quarter: 2024Q3

REPORT INFORMATION
  Report Type: Spontaneous
  Country: JP (occurrence: None)
  Receive Date: 20240730
  Receipt Date: 20240814
  Transmission Date: 20241016
  Serious: Yes (Other)
  Sender: UNICHEM
  Company Number: JP-Unichem Pharmaceuticals (USA) Inc-UCM202407-000930

PATIENT
  Age: 72 Year
  Sex: Male
  Weight: 71.4 kg

DRUGS (20)
  1. CARBAMAZEPINE [Suspect]
     Active Substance: CARBAMAZEPINE
     Indication: New onset refractory status epilepticus
  2. THIAMYLAL [Suspect]
     Active Substance: THIAMYLAL
     Indication: New onset refractory status epilepticus
     Dosage: 2.1 MG/KG AS A BOLUS
  3. THIAMYLAL [Suspect]
     Active Substance: THIAMYLAL
     Dosage: (4.2 MG/KG/H) FOR 90  MIN
  4. THIAMYLAL [Suspect]
     Active Substance: THIAMYLAL
     Dosage: 5.2 MG/KG/H
  5. PERAMPANEL [Suspect]
     Active Substance: PERAMPANEL
     Indication: New onset refractory status epilepticus
  6. PERAMPANEL [Suspect]
     Active Substance: PERAMPANEL
  7. PERAMPANEL [Suspect]
     Active Substance: PERAMPANEL
  8. PERAMPANEL [Suspect]
     Active Substance: PERAMPANEL
  9. CLOBAZAM [Suspect]
     Active Substance: CLOBAZAM
     Indication: New onset refractory status epilepticus
  10. LACOSAMIDE [Suspect]
     Active Substance: LACOSAMIDE
     Indication: New onset refractory status epilepticus
  11. METHYLPREDNISOLONE [Concomitant]
     Active Substance: METHYLPREDNISOLONE
     Indication: Encephalitis
  12. LEVETIRACETAM [Concomitant]
     Active Substance: LEVETIRACETAM
     Indication: Seizure
     Dosage: UNKNOWN
  13. PREDNISOLONE [Concomitant]
     Active Substance: PREDNISOLONE
     Indication: Product used for unknown indication
  14. ESOMEPRAZOLE [Concomitant]
     Active Substance: ESOMEPRAZOLE
     Indication: Product used for unknown indication
  15. SULFAMETHOXAZOLE\TRIMETHOPRIM [Concomitant]
     Active Substance: SULFAMETHOXAZOLE\TRIMETHOPRIM
     Indication: Product used for unknown indication
     Dosage: ONE TABLET ONCE DAILY.
  16. CARBOCYSTEINE [Concomitant]
     Active Substance: CARBOCYSTEINE
     Indication: Product used for unknown indication
  17. MOSAPRIDE [Concomitant]
     Active Substance: MOSAPRIDE
     Indication: Product used for unknown indication
  18. MAGNESIUM OXIDE [Concomitant]
     Active Substance: MAGNESIUM OXIDE
     Indication: Product used for unknown indication
  19. NOREPINEPHRINE [Concomitant]
     Active Substance: NOREPINEPHRINE\NOREPINEPHRINE BITARTRATE
     Indication: Product used for unknown indication
  20. MIDAZOLAM [Concomitant]
     Active Substance: MIDAZOLAM
     Indication: Product used for unknown indication

REACTIONS (3)
  - Drug level decreased [Unknown]
  - Drug interaction [Unknown]
  - Drug ineffective [Unknown]
